FAERS Safety Report 7260869-2 (Version None)
Quarter: 2011Q1

REPORT INFORMATION
  Report Type: 
  Country: None (occurrence: None)
  Receive Date: 20110128
  Receipt Date: 20110128
  Transmission Date: 20110831
  Serious: No
  Sender: FDA-Public Use
  Company Number: None

PATIENT
  Age: 42 Year
  Sex: Male
  Weight: 124.7392 kg

DRUGS (1)
  1. STERILE ALCOHOL PREP PAD TRIAD [Suspect]

REACTIONS (6)
  - LACERATION [None]
  - SCAB [None]
  - INJECTION SITE PAIN [None]
  - INJECTION SITE HAEMATOMA [None]
  - PRODUCT QUALITY ISSUE [None]
  - INJECTION SITE ERYTHEMA [None]
